FAERS Safety Report 8140437-0 (Version None)
Quarter: 2012Q1

REPORT INFORMATION
  Report Type: 
  Country: None (occurrence: None)
  Receive Date: 20120216
  Receipt Date: 20120214
  Transmission Date: 20120608
  Serious: Yes (Other)
  Sender: FDA-Public Use
  Company Number: PH-PFIZER INC-2012040208

PATIENT
  Sex: Male

DRUGS (2)
  1. LIPITOR [Suspect]
     Dosage: 20 MG, UNK
  2. FENOFIBRATE [Concomitant]
     Dosage: 200 MG, UNK

REACTIONS (3)
  - BLOOD CREATININE INCREASED [None]
  - BLOOD URINE PRESENT [None]
  - ASTHENIA [None]
